FAERS Safety Report 18446631 (Version 1)
Quarter: 2020Q4

REPORT INFORMATION
  Report Type: Spontaneous
  Country: US (occurrence: US)
  Receive Date: 20201030
  Receipt Date: 20201030
  Transmission Date: 20210114
  Serious: Yes (Hospitalization)
  Sender: FDA-Public Use
  Company Number: None

PATIENT
  Age: 66 Year
  Sex: Male

DRUGS (13)
  1. LEVOTHYROXINE. [Concomitant]
     Active Substance: LEVOTHYROXINE
  2. FLUTICASONE. [Concomitant]
     Active Substance: FLUTICASONE
  3. KETOCONAZOLE SHAMPOO [Concomitant]
     Active Substance: KETOCONAZOLE
  4. CLOBETASOL OINTMENT [Concomitant]
     Active Substance: CLOBETASOL
  5. HUMIRA PEN 40.04 MG/ML [Concomitant]
  6. HUMIRA [Suspect]
     Active Substance: ADALIMUMAB
     Indication: PSORIASIS
     Dosage: ?          OTHER FREQUENCY:Q OTHER WEEK;?
     Route: 058
     Dates: start: 20190705
  7. MELOXICAM. [Concomitant]
     Active Substance: MELOXICAM
  8. AMOXICILLIN. [Concomitant]
     Active Substance: AMOXICILLIN
  9. TAMSULOSIN [Concomitant]
     Active Substance: TAMSULOSIN
  10. METHOTREXATE. [Concomitant]
     Active Substance: METHOTREXATE
  11. FAMOTIDINE. [Concomitant]
     Active Substance: FAMOTIDINE
  12. FOLIC ACID TABLET [Concomitant]
     Active Substance: FOLIC ACID
  13. LOSARTAN POTASSIUM TABLET [Concomitant]
     Active Substance: LOSARTAN POTASSIUM

REACTIONS (1)
  - Surgery [None]

NARRATIVE: CASE EVENT DATE: 20200923
